FAERS Safety Report 7526471-X (Version None)
Quarter: 2011Q2

REPORT INFORMATION
  Report Type: 
  Country: None (occurrence: None)
  Receive Date: 20110606
  Receipt Date: 20110602
  Transmission Date: 20111010
  Serious: No
  Sender: FDA-Public Use
  Company Number: US-PFIZER INC-2011120983

PATIENT
  Sex: Female
  Weight: 51.701 kg

DRUGS (4)
  1. VENLAFAXINE HCL [Suspect]
     Indication: DEPRESSION
     Dosage: UNK
     Route: 048
  2. EFFEXOR [Suspect]
     Indication: DEPRESSION
     Dosage: UNK
     Route: 048
  3. VITAMIN D [Concomitant]
     Indication: BONE DISORDER
     Dosage: 1000 IU, DAILY
  4. CALCIUM [Concomitant]
     Indication: BONE DISORDER
     Dosage: 500 MG, DAILY

REACTIONS (4)
  - CONSTIPATION [None]
  - ABNORMAL DREAMS [None]
  - SOMNOLENCE [None]
  - LIBIDO DECREASED [None]
